FAERS Safety Report 23098398 (Version 26)
Quarter: 2025Q1

REPORT INFORMATION
  Report Type: Spontaneous
  Country: CA (occurrence: CA)
  Receive Date: 20231023
  Receipt Date: 20250324
  Transmission Date: 20250409
  Serious: Yes (Death, Life-Threatening, Hospitalization, Disabling, Congenital Anomaly, Other)
  Sender: PURDUE
  Company Number: CA-PURDUE-USA-2023-0305463

PATIENT
  Age: 40 Year
  Sex: Female
  Weight: 73 kg

DRUGS (290)
  1. OXYCODONE HYDROCHLORIDE [Suspect]
     Active Substance: OXYCODONE HYDROCHLORIDE
     Indication: Product used for unknown indication
     Route: 065
  2. BUTRANS [Suspect]
     Active Substance: BUPRENORPHINE
     Indication: Product used for unknown indication
     Route: 065
  3. TRAMADOL HYDROCHLORIDE [Suspect]
     Active Substance: TRAMADOL HYDROCHLORIDE
     Indication: Product used for unknown indication
     Route: 065
  4. TRAMADOL HYDROCHLORIDE [Suspect]
     Active Substance: TRAMADOL HYDROCHLORIDE
     Dosage: 20 MILLIGRAM, 1 EVERY 1 DAYS
     Route: 065
  5. ACTEMRA [Suspect]
     Active Substance: TOCILIZUMAB
     Indication: Rheumatoid arthritis
     Route: 042
  6. ACTEMRA [Suspect]
     Active Substance: TOCILIZUMAB
     Indication: Product used for unknown indication
     Route: 042
  7. ACTEMRA [Suspect]
     Active Substance: TOCILIZUMAB
     Route: 061
  8. ACTEMRA [Suspect]
     Active Substance: TOCILIZUMAB
     Route: 042
  9. ACTEMRA [Suspect]
     Active Substance: TOCILIZUMAB
     Route: 058
  10. ACTEMRA [Suspect]
     Active Substance: TOCILIZUMAB
     Route: 042
  11. ACTEMRA [Suspect]
     Active Substance: TOCILIZUMAB
     Route: 065
  12. ACTEMRA [Suspect]
     Active Substance: TOCILIZUMAB
     Route: 042
  13. ACTEMRA [Suspect]
     Active Substance: TOCILIZUMAB
     Route: 058
  14. ACTEMRA [Suspect]
     Active Substance: TOCILIZUMAB
     Dosage: 25 MILLIGRAM, WEEKLY (1 EVERY 1 WEEKS)
     Route: 058
  15. ACTEMRA [Suspect]
     Active Substance: TOCILIZUMAB
     Route: 042
  16. ACTEMRA [Suspect]
     Active Substance: TOCILIZUMAB
     Route: 058
  17. ACTEMRA [Suspect]
     Active Substance: TOCILIZUMAB
     Route: 065
  18. ACTEMRA [Suspect]
     Active Substance: TOCILIZUMAB
     Route: 058
  19. ACTEMRA [Suspect]
     Active Substance: TOCILIZUMAB
     Route: 065
  20. ACTEMRA [Suspect]
     Active Substance: TOCILIZUMAB
     Route: 042
  21. ACTEMRA [Suspect]
     Active Substance: TOCILIZUMAB
     Route: 065
  22. ACTEMRA [Suspect]
     Active Substance: TOCILIZUMAB
     Route: 058
  23. ACTEMRA [Suspect]
     Active Substance: TOCILIZUMAB
     Route: 065
  24. ACTEMRA [Suspect]
     Active Substance: TOCILIZUMAB
     Route: 058
  25. ACTEMRA [Suspect]
     Active Substance: TOCILIZUMAB
     Route: 058
  26. ACTEMRA [Suspect]
     Active Substance: TOCILIZUMAB
     Route: 058
  27. ACTEMRA [Suspect]
     Active Substance: TOCILIZUMAB
     Route: 061
  28. ACTEMRA [Suspect]
     Active Substance: TOCILIZUMAB
     Route: 042
  29. ACTEMRA [Suspect]
     Active Substance: TOCILIZUMAB
     Dosage: 162 MILLIGRAM, WEEKLY
     Route: 065
  30. ACTEMRA [Suspect]
     Active Substance: TOCILIZUMAB
     Route: 058
  31. ACTEMRA [Suspect]
     Active Substance: TOCILIZUMAB
     Route: 042
  32. ACTEMRA [Suspect]
     Active Substance: TOCILIZUMAB
     Route: 058
  33. ACTEMRA [Suspect]
     Active Substance: TOCILIZUMAB
     Route: 017
  34. LEFLUNOMIDE [Suspect]
     Active Substance: LEFLUNOMIDE
     Indication: Rheumatoid arthritis
     Route: 065
  35. LEFLUNOMIDE [Suspect]
     Active Substance: LEFLUNOMIDE
     Dosage: 10 MILLIGRAM, DAILY
     Route: 048
  36. LEFLUNOMIDE [Suspect]
     Active Substance: LEFLUNOMIDE
     Route: 048
  37. LEFLUNOMIDE [Suspect]
     Active Substance: LEFLUNOMIDE
     Route: 065
  38. LEFLUNOMIDE [Suspect]
     Active Substance: LEFLUNOMIDE
     Dosage: 20 MILLIGRAM, DAILY (1 EVERY 1 DAYS)
     Route: 065
  39. LEFLUNOMIDE [Suspect]
     Active Substance: LEFLUNOMIDE
     Dosage: 20 MILLIGRAM, DAILY (1 EVERY 1 DAYS)
     Route: 048
  40. LEFLUNOMIDE [Suspect]
     Active Substance: LEFLUNOMIDE
     Route: 048
  41. LEFLUNOMIDE [Suspect]
     Active Substance: LEFLUNOMIDE
     Dosage: 10 MILLIGRAM, DAILY (1 EVERY 1 DAYS)
     Route: 048
  42. LEFLUNOMIDE [Suspect]
     Active Substance: LEFLUNOMIDE
     Route: 048
  43. LEFLUNOMIDE [Suspect]
     Active Substance: LEFLUNOMIDE
     Route: 065
  44. LEFLUNOMIDE [Suspect]
     Active Substance: LEFLUNOMIDE
     Route: 048
  45. LEFLUNOMIDE [Suspect]
     Active Substance: LEFLUNOMIDE
     Route: 048
  46. LEFLUNOMIDE [Suspect]
     Active Substance: LEFLUNOMIDE
     Dosage: 5 MILLIGRAM, DAILY
     Route: 048
  47. LEFLUNOMIDE [Suspect]
     Active Substance: LEFLUNOMIDE
     Dosage: 10 MILLIGRAM, DAILY (1 EVERY 1 DAYS)
     Route: 065
  48. ARAVA [Suspect]
     Active Substance: LEFLUNOMIDE
     Indication: Rheumatoid arthritis
     Route: 065
  49. ARAVA [Suspect]
     Active Substance: LEFLUNOMIDE
     Indication: Product used for unknown indication
     Route: 048
  50. ARAVA [Suspect]
     Active Substance: LEFLUNOMIDE
     Route: 048
  51. ARAVA [Suspect]
     Active Substance: LEFLUNOMIDE
     Dosage: 20 MILLIGRAM, DAILY
     Route: 048
  52. ARAVA [Suspect]
     Active Substance: LEFLUNOMIDE
     Route: 048
  53. ARAVA [Suspect]
     Active Substance: LEFLUNOMIDE
     Route: 005
  54. ARAVA [Suspect]
     Active Substance: LEFLUNOMIDE
     Route: 065
  55. ARAVA [Suspect]
     Active Substance: LEFLUNOMIDE
     Route: 065
  56. ARAVA [Suspect]
     Active Substance: LEFLUNOMIDE
     Dosage: 20 MILLIGRAM, DAILY
     Route: 065
  57. ARAVA [Suspect]
     Active Substance: LEFLUNOMIDE
     Indication: Rheumatoid arthritis
     Route: 065
  58. AZATHIOPRINE SODIUM [Suspect]
     Active Substance: AZATHIOPRINE SODIUM
     Indication: Product used for unknown indication
     Route: 065
  59. CERTOLIZUMAB PEGOL [Suspect]
     Active Substance: CERTOLIZUMAB PEGOL
     Indication: Product used for unknown indication
     Route: 065
  60. CERTOLIZUMAB PEGOL [Suspect]
     Active Substance: CERTOLIZUMAB PEGOL
     Route: 058
  61. CERTOLIZUMAB PEGOL [Suspect]
     Active Substance: CERTOLIZUMAB PEGOL
     Route: 058
  62. CERTOLIZUMAB PEGOL [Suspect]
     Active Substance: CERTOLIZUMAB PEGOL
     Route: 016
  63. CERTOLIZUMAB PEGOL [Suspect]
     Active Substance: CERTOLIZUMAB PEGOL
     Route: 065
  64. CIMZIA [Suspect]
     Active Substance: CERTOLIZUMAB PEGOL
     Indication: Rheumatoid arthritis
     Route: 065
  65. CIMZIA [Suspect]
     Active Substance: CERTOLIZUMAB PEGOL
     Indication: Psoriasis
     Route: 058
  66. CIMZIA [Suspect]
     Active Substance: CERTOLIZUMAB PEGOL
     Indication: Product used for unknown indication
     Route: 058
  67. CIMZIA [Suspect]
     Active Substance: CERTOLIZUMAB PEGOL
     Route: 058
  68. CIMZIA [Suspect]
     Active Substance: CERTOLIZUMAB PEGOL
     Route: 058
  69. CIMZIA [Suspect]
     Active Substance: CERTOLIZUMAB PEGOL
     Route: 005
  70. CIMZIA [Suspect]
     Active Substance: CERTOLIZUMAB PEGOL
     Route: 016
  71. CIMZIA [Suspect]
     Active Substance: CERTOLIZUMAB PEGOL
     Route: 058
  72. ENBREL [Suspect]
     Active Substance: ETANERCEPT
     Indication: Rheumatoid arthritis
     Route: 058
  73. ENBREL [Suspect]
     Active Substance: ETANERCEPT
     Indication: Product used for unknown indication
     Route: 058
  74. ENBREL [Suspect]
     Active Substance: ETANERCEPT
     Dosage: 10 MILLIGRAM, WEEKLY
     Route: 065
  75. ENBREL [Suspect]
     Active Substance: ETANERCEPT
     Route: 058
  76. ENBREL [Suspect]
     Active Substance: ETANERCEPT
     Dosage: 50 MILLIGRAM, WEEKLY
     Route: 058
  77. ENBREL [Suspect]
     Active Substance: ETANERCEPT
     Route: 058
  78. ENBREL [Suspect]
     Active Substance: ETANERCEPT
     Route: 065
  79. ENBREL [Suspect]
     Active Substance: ETANERCEPT
     Dosage: 10 MILLIGRAM, WEEKLY
     Route: 058
  80. ENBREL [Suspect]
     Active Substance: ETANERCEPT
     Dosage: 40 MILLIGRAM 1 EVERY 1 WEEK
     Route: 058
  81. ETANERCEPT [Suspect]
     Active Substance: ETANERCEPT
     Indication: Rheumatoid arthritis
     Route: 065
  82. ETANERCEPT [Suspect]
     Active Substance: ETANERCEPT
     Route: 058
  83. ETANERCEPT [Suspect]
     Active Substance: ETANERCEPT
     Route: 048
  84. ADALIMUMAB [Suspect]
     Active Substance: ADALIMUMAB
     Indication: Rheumatoid arthritis
     Route: 058
  85. ADALIMUMAB [Suspect]
     Active Substance: ADALIMUMAB
     Route: 065
  86. ADALIMUMAB [Suspect]
     Active Substance: ADALIMUMAB
     Route: 058
  87. ADALIMUMAB [Suspect]
     Active Substance: ADALIMUMAB
     Route: 058
  88. ADALIMUMAB [Suspect]
     Active Substance: ADALIMUMAB
     Route: 058
  89. ADALIMUMAB [Suspect]
     Active Substance: ADALIMUMAB
     Route: 065
  90. ADALIMUMAB [Suspect]
     Active Substance: ADALIMUMAB
     Route: 057
  91. INFLIXIMAB [Suspect]
     Active Substance: INFLIXIMAB
     Indication: Rheumatoid arthritis
     Route: 042
  92. INFLIXIMAB [Suspect]
     Active Substance: INFLIXIMAB
     Indication: Product used for unknown indication
     Route: 065
  93. INFLIXIMAB [Suspect]
     Active Substance: INFLIXIMAB
     Route: 042
  94. INFLIXIMAB [Suspect]
     Active Substance: INFLIXIMAB
     Route: 065
  95. INFLIXIMAB [Suspect]
     Active Substance: INFLIXIMAB
     Route: 042
  96. METHOTREXATE [Suspect]
     Active Substance: METHOTREXATE
     Indication: Rheumatoid arthritis
     Route: 048
  97. METHOTREXATE [Suspect]
     Active Substance: METHOTREXATE
     Route: 013
  98. METHOTREXATE [Suspect]
     Active Substance: METHOTREXATE
     Dosage: 15 MILLIGRAM, WEEKLY (1 EVERY 1 WEEK)
     Route: 058
  99. METHOTREXATE [Suspect]
     Active Substance: METHOTREXATE
     Route: 048
  100. METHOTREXATE [Suspect]
     Active Substance: METHOTREXATE
     Dosage: 20 MILLIGRAM, DAILY (1 EVERY 1 DAYS)
     Route: 048
  101. METHOTREXATE [Suspect]
     Active Substance: METHOTREXATE
     Dosage: 25 MILLIGRAM, WEEKLY (1 EVERY 1 WEEKS)
     Route: 065
  102. METHOTREXATE [Suspect]
     Active Substance: METHOTREXATE
     Route: 065
  103. METHOTREXATE [Suspect]
     Active Substance: METHOTREXATE
     Route: 048
  104. METHOTREXATE [Suspect]
     Active Substance: METHOTREXATE
     Route: 058
  105. METHOTREXATE [Suspect]
     Active Substance: METHOTREXATE
     Dosage: 25 MILLIGRAM, WEEKLY (1 EVERY 1 WEEKS)
     Route: 048
  106. METHOTREXATE [Suspect]
     Active Substance: METHOTREXATE
     Route: 048
  107. METHOTREXATE [Suspect]
     Active Substance: METHOTREXATE
     Dosage: 20 MILLIGRAM, WEEKLY (1 EVERY 1 WEEK)
     Route: 058
  108. METHOTREXATE [Suspect]
     Active Substance: METHOTREXATE
     Dosage: 25 MILLIGRAM, WEEKLY (1 EVERY 1 WEEKS)
     Route: 013
  109. METHOTREXATE [Suspect]
     Active Substance: METHOTREXATE
     Dosage: 15 MILLIGRAM, WEEKLY
     Route: 048
  110. METHOTREXATE [Suspect]
     Active Substance: METHOTREXATE
     Route: 065
  111. METHOTREXATE [Suspect]
     Active Substance: METHOTREXATE
     Route: 048
  112. METHOTREXATE [Suspect]
     Active Substance: METHOTREXATE
     Route: 065
  113. METHOTREXATE [Suspect]
     Active Substance: METHOTREXATE
     Route: 013
  114. METHOTREXATE [Suspect]
     Active Substance: METHOTREXATE
     Route: 048
  115. METHOTREXATE [Suspect]
     Active Substance: METHOTREXATE
     Route: 065
  116. METHOTREXATE [Suspect]
     Active Substance: METHOTREXATE
     Route: 016
  117. METHOTREXATE [Suspect]
     Active Substance: METHOTREXATE
     Route: 065
  118. METHOTREXATE [Suspect]
     Active Substance: METHOTREXATE
     Route: 048
  119. METHOTREXATE [Suspect]
     Active Substance: METHOTREXATE
     Route: 048
  120. METHOTREXATE [Suspect]
     Active Substance: METHOTREXATE
     Route: 065
  121. METHOTREXATE [Suspect]
     Active Substance: METHOTREXATE
     Route: 048
  122. METHOTREXATE [Suspect]
     Active Substance: METHOTREXATE
     Route: 013
  123. METHOTREXATE [Suspect]
     Active Substance: METHOTREXATE
     Route: 048
  124. METHYLPREDNISOLONE [Suspect]
     Active Substance: METHYLPREDNISOLONE
     Indication: Product used for unknown indication
     Route: 065
  125. METHYLPREDNISOLONE [Suspect]
     Active Substance: METHYLPREDNISOLONE
     Route: 065
  126. ORENCIA [Suspect]
     Active Substance: ABATACEPT
     Indication: Rheumatoid arthritis
     Route: 042
  127. ORENCIA [Suspect]
     Active Substance: ABATACEPT
     Route: 065
  128. ORENCIA [Suspect]
     Active Substance: ABATACEPT
     Route: 065
  129. ORENCIA [Suspect]
     Active Substance: ABATACEPT
     Dosage: 125 MILLIGRAM, WEEKLY (1 EVERY 1 WEEKS)
     Route: 058
  130. ORENCIA [Suspect]
     Active Substance: ABATACEPT
     Route: 042
  131. ORENCIA [Suspect]
     Active Substance: ABATACEPT
     Route: 065
  132. ORENCIA [Suspect]
     Active Substance: ABATACEPT
     Route: 065
  133. ORENCIA [Suspect]
     Active Substance: ABATACEPT
     Route: 065
  134. ORENCIA [Suspect]
     Active Substance: ABATACEPT
     Route: 058
  135. ORENCIA [Suspect]
     Active Substance: ABATACEPT
     Route: 042
  136. ORENCIA [Suspect]
     Active Substance: ABATACEPT
     Route: 042
  137. ORENCIA [Suspect]
     Active Substance: ABATACEPT
     Route: 042
  138. PLAQUENIL [Suspect]
     Active Substance: HYDROXYCHLOROQUINE SULFATE
     Indication: Rheumatoid arthritis
     Route: 048
  139. PREDNISONE [Suspect]
     Active Substance: PREDNISONE
     Indication: Rheumatoid arthritis
     Route: 065
  140. PREDNISONE [Suspect]
     Active Substance: PREDNISONE
     Indication: Product used for unknown indication
     Dosage: 50 MILLIGRAM, DAILY (1 EVERY 1 DAYS)
     Route: 065
  141. PREDNISONE [Suspect]
     Active Substance: PREDNISONE
     Route: 065
  142. PREDNISONE [Suspect]
     Active Substance: PREDNISONE
     Route: 065
  143. PREDNISONE [Suspect]
     Active Substance: PREDNISONE
     Dosage: 20 MILLIGRAM, DAILY
     Route: 048
  144. PREDNISONE [Suspect]
     Active Substance: PREDNISONE
     Route: 065
  145. PREDNISONE [Suspect]
     Active Substance: PREDNISONE
     Route: 065
  146. PREDNISONE [Suspect]
     Active Substance: PREDNISONE
     Route: 065
  147. PREDNISONE [Suspect]
     Active Substance: PREDNISONE
     Route: 065
  148. PREDNISONE [Suspect]
     Active Substance: PREDNISONE
     Route: 048
  149. PREDNISONE [Suspect]
     Active Substance: PREDNISONE
     Route: 048
  150. PREDNISONE [Suspect]
     Active Substance: PREDNISONE
     Route: 048
  151. PREDNISONE [Suspect]
     Active Substance: PREDNISONE
     Dosage: 20 MILLIGRAM, DAILY (1 EVERY 1 DAYS)
     Route: 048
  152. PREDNISONE [Suspect]
     Active Substance: PREDNISONE
     Route: 048
  153. PREDNISONE [Suspect]
     Active Substance: PREDNISONE
     Route: 048
  154. PREDNISONE [Suspect]
     Active Substance: PREDNISONE
     Dosage: 5 MG DAILY (1 EVERY 1 DAY)
     Route: 048
  155. PREDNISONE [Suspect]
     Active Substance: PREDNISONE
     Dosage: 50 MILLIGRAM, DAILY (1 EVERY 1 DAYS)
     Route: 048
  156. PREDNISONE [Suspect]
     Active Substance: PREDNISONE
     Route: 048
  157. REMICADE [Suspect]
     Active Substance: INFLIXIMAB
     Indication: Rheumatoid arthritis
     Route: 042
  158. REMICADE [Suspect]
     Active Substance: INFLIXIMAB
     Route: 042
  159. REMICADE [Suspect]
     Active Substance: INFLIXIMAB
     Route: 058
  160. REMICADE [Suspect]
     Active Substance: INFLIXIMAB
     Dosage: 500 MILLIGRAM, DAILY (1 EVERY 1 DAYS)
     Route: 042
  161. REMICADE [Suspect]
     Active Substance: INFLIXIMAB
     Route: 065
  162. REMICADE [Suspect]
     Active Substance: INFLIXIMAB
     Route: 058
  163. REMICADE [Suspect]
     Active Substance: INFLIXIMAB
     Dosage: 500 MILLIGRAM, Q24H (1 EVERY 24 HOURS)
     Route: 058
  164. REMICADE [Suspect]
     Active Substance: INFLIXIMAB
     Route: 065
  165. RITUXIMAB [Suspect]
     Active Substance: RITUXIMAB
     Indication: Rheumatoid arthritis
     Route: 058
  166. RITUXIMAB [Suspect]
     Active Substance: RITUXIMAB
     Indication: Product used for unknown indication
  167. RITUXIMAB [Suspect]
     Active Substance: RITUXIMAB
     Route: 065
  168. RITUXIMAB [Suspect]
     Active Substance: RITUXIMAB
     Dosage: 2000 MILLIGRAM, DAILY (1 EVERY 1 DAYS)
     Route: 065
  169. RITUXIMAB [Suspect]
     Active Substance: RITUXIMAB
     Route: 042
  170. RITUXIMAB [Suspect]
     Active Substance: RITUXIMAB
     Dosage: 1 GRAM, Q12H (1 EVERY 12 HOURS)
     Route: 041
  171. RITUXIMAB [Suspect]
     Active Substance: RITUXIMAB
     Dosage: 2000 MILLIGRAM, DAILY (1 EVERY 1 DAYS)
     Route: 065
  172. RITUXIMAB [Suspect]
     Active Substance: RITUXIMAB
     Dosage: 2 GRAM, DAILY (1 EVERY 1 DAYS)
     Route: 041
  173. RITUXIMAB [Suspect]
     Active Substance: RITUXIMAB
     Route: 065
  174. RITUXIMAB [Suspect]
     Active Substance: RITUXIMAB
     Route: 043
  175. RITUXIMAB [Suspect]
     Active Substance: RITUXIMAB
     Dosage: 2000 MILLIGRAM, DAILY
     Route: 041
  176. RITUXIMAB [Suspect]
     Active Substance: RITUXIMAB
     Dosage: 1000 MILLIGRAM, BID (2 EVERY 1 DAYS)
     Route: 042
  177. RITUXIMAB [Suspect]
     Active Substance: RITUXIMAB
     Route: 016
  178. RITUXIMAB [Suspect]
     Active Substance: RITUXIMAB
     Route: 042
  179. RITUXIMAB [Suspect]
     Active Substance: RITUXIMAB
     Route: 041
  180. RITUXIMAB [Suspect]
     Active Substance: RITUXIMAB
     Route: 042
  181. RITUXIMAB [Suspect]
     Active Substance: RITUXIMAB
     Route: 042
  182. RITUXIMAB [Suspect]
     Active Substance: RITUXIMAB
     Route: 065
  183. RITUXIMAB [Suspect]
     Active Substance: RITUXIMAB
     Route: 065
  184. SIMPONI [Suspect]
     Active Substance: GOLIMUMAB
     Indication: Rheumatoid arthritis
     Route: 058
  185. SIMPONI [Suspect]
     Active Substance: GOLIMUMAB
     Indication: Product used for unknown indication
     Route: 058
  186. SIMPONI [Suspect]
     Active Substance: GOLIMUMAB
     Route: 065
  187. SIMPONI [Suspect]
     Active Substance: GOLIMUMAB
     Route: 058
  188. SIMPONI [Suspect]
     Active Substance: GOLIMUMAB
     Route: 058
  189. GOLD SODIUM THIOMALATE [Suspect]
     Active Substance: GOLD SODIUM THIOMALATE
     Indication: Product used for unknown indication
     Route: 065
  190. GOLD SODIUM THIOMALATE [Suspect]
     Active Substance: GOLD SODIUM THIOMALATE
     Route: 048
  191. SULFASALAZINE [Suspect]
     Active Substance: SULFASALAZINE
     Indication: Rheumatoid arthritis
     Route: 048
  192. SULFASALAZINE [Suspect]
     Active Substance: SULFASALAZINE
     Route: 048
  193. SULFASALAZINE [Suspect]
     Active Substance: SULFASALAZINE
     Route: 048
  194. SULFASALAZINE [Suspect]
     Active Substance: SULFASALAZINE
     Dosage: 1 GRAM, Q12H (1 EVERY 12 HOURS)
     Route: 058
  195. SULFASALAZINE [Suspect]
     Active Substance: SULFASALAZINE
     Route: 065
  196. SULFASALAZINE [Suspect]
     Active Substance: SULFASALAZINE
     Route: 058
  197. SULFASALAZINE [Suspect]
     Active Substance: SULFASALAZINE
     Dosage: 2 GRAM, DAILY (1 EVERY 1 DAYS)
     Route: 065
  198. SULFASALAZINE [Suspect]
     Active Substance: SULFASALAZINE
     Dosage: 1 DOSAGE FORM, Q12H (1 EVERY 12 HOURS)
     Route: 048
  199. SULFASALAZINE [Suspect]
     Active Substance: SULFASALAZINE
     Dosage: 300 MILLIGRAM, DAILY (1 EVERY 1 DAYS)
     Route: 065
  200. SULFASALAZINE [Suspect]
     Active Substance: SULFASALAZINE
     Dosage: 1 GRAM, DAILY (1 EVERY 1 DAYS)
     Route: 065
  201. SULFASALAZINE [Suspect]
     Active Substance: SULFASALAZINE
     Dosage: 1000 MILLIGRAM, Q12H (1 EVERY 12 HOURS)
     Route: 048
  202. SULFASALAZINE [Suspect]
     Active Substance: SULFASALAZINE
     Route: 048
  203. SULFASALAZINE [Suspect]
     Active Substance: SULFASALAZINE
     Route: 048
  204. SULFASALAZINE [Suspect]
     Active Substance: SULFASALAZINE
     Route: 048
  205. SULFASALAZINE [Suspect]
     Active Substance: SULFASALAZINE
     Dosage: 2 DOSAGE FORM, Q12H (1 EVERY 12 HOURS)
     Route: 048
  206. SULFASALAZINE [Suspect]
     Active Substance: SULFASALAZINE
     Dosage: 2 GRAM, DAILY (1 EVERY 1 DAYS)
     Route: 058
  207. SULFASALAZINE [Suspect]
     Active Substance: SULFASALAZINE
     Route: 048
  208. SULFASALAZINE [Suspect]
     Active Substance: SULFASALAZINE
     Route: 065
  209. SULFASALAZINE [Suspect]
     Active Substance: SULFASALAZINE
     Route: 048
  210. SULFASALAZINE [Suspect]
     Active Substance: SULFASALAZINE
     Dosage: 1 GRAM, DAILY (2 EVERY 1 DAYS)
     Route: 058
  211. SULFASALAZINE [Suspect]
     Active Substance: SULFASALAZINE
     Dosage: 1 DOSAGE FORM, BID (2 EVERY 1 DAYS)(
     Route: 048
  212. SULFASALAZINE [Suspect]
     Active Substance: SULFASALAZINE
     Route: 065
  213. SULFASALAZINE [Suspect]
     Active Substance: SULFASALAZINE
     Route: 016
  214. SULFASALAZINE [Suspect]
     Active Substance: SULFASALAZINE
     Route: 048
  215. SULFASALAZINE [Suspect]
     Active Substance: SULFASALAZINE
     Route: 048
  216. TOCILIZUMAB [Suspect]
     Active Substance: TOCILIZUMAB
     Indication: Rheumatoid arthritis
     Route: 058
  217. TOCILIZUMAB [Suspect]
     Active Substance: TOCILIZUMAB
     Route: 065
  218. TOCILIZUMAB [Suspect]
     Active Substance: TOCILIZUMAB
     Route: 042
  219. TOCILIZUMAB [Suspect]
     Active Substance: TOCILIZUMAB
     Route: 042
  220. TOCILIZUMAB [Suspect]
     Active Substance: TOCILIZUMAB
     Route: 058
  221. TOCILIZUMAB [Suspect]
     Active Substance: TOCILIZUMAB
     Route: 042
  222. TOCILIZUMAB [Suspect]
     Active Substance: TOCILIZUMAB
     Dosage: 5 MILLIGRAM, BID (2 EVERY 1 DAYS)
     Route: 065
  223. TOCILIZUMAB [Suspect]
     Active Substance: TOCILIZUMAB
     Dosage: 10 MILLIGRAM, Q24H(1 EVERY 24 HOURS)
     Route: 048
  224. TOCILIZUMAB [Suspect]
     Active Substance: TOCILIZUMAB
     Route: 016
  225. TOFACITINIB CITRATE [Suspect]
     Active Substance: TOFACITINIB CITRATE
     Indication: Rheumatoid arthritis
     Dosage: 5 MILLIGRAM, Q12H (1 EVERY 12 HOURS)
     Route: 065
  226. TOFACITINIB CITRATE [Suspect]
     Active Substance: TOFACITINIB CITRATE
     Indication: Product used for unknown indication
     Dosage: 10 MILLIGRAM, DAILY (1 EVERY 1 DAYS)
     Route: 048
  227. TOFACITINIB CITRATE [Suspect]
     Active Substance: TOFACITINIB CITRATE
     Route: 048
  228. XELJANZ [Suspect]
     Active Substance: TOFACITINIB CITRATE
     Indication: Rheumatoid arthritis
     Route: 065
  229. XELJANZ [Suspect]
     Active Substance: TOFACITINIB CITRATE
     Dosage: 10 MILLIGRAM, Q12H (1 EVERY 12 HOURS)
     Route: 048
  230. XELJANZ [Suspect]
     Active Substance: TOFACITINIB CITRATE
     Dosage: 5 MILLIGRAM, Q12H (1 EVERY 12 HOURS)
     Route: 048
  231. XELJANZ [Suspect]
     Active Substance: TOFACITINIB CITRATE
     Dosage: 5 MILLIGRAM, Q12H (1 EVERY 12 HOURS)
     Route: 065
  232. XELJANZ [Suspect]
     Active Substance: TOFACITINIB CITRATE
     Route: 065
  233. XELJANZ [Suspect]
     Active Substance: TOFACITINIB CITRATE
     Route: 048
  234. XELJANZ [Suspect]
     Active Substance: TOFACITINIB CITRATE
     Route: 065
  235. XELJANZ [Suspect]
     Active Substance: TOFACITINIB CITRATE
     Dosage: 5 MILLIGRAM, Q12H
     Route: 065
  236. ACETAMINOPHEN [Suspect]
     Active Substance: ACETAMINOPHEN
     Indication: Product used for unknown indication
     Route: 065
  237. ACETAMINOPHEN [Suspect]
     Active Substance: ACETAMINOPHEN
     Indication: Rheumatoid arthritis
     Route: 065
  238. ACETAMINOPHEN [Suspect]
     Active Substance: ACETAMINOPHEN
     Route: 065
  239. ALENDRONATE SODIUM [Suspect]
     Active Substance: ALENDRONATE SODIUM
     Indication: Product used for unknown indication
     Route: 065
  240. ALENDRONATE SODIUM [Suspect]
     Active Substance: ALENDRONATE SODIUM
     Indication: Rheumatoid arthritis
     Route: 016
  241. ALENDRONATE SODIUM [Suspect]
     Active Substance: ALENDRONATE SODIUM
     Route: 048
  242. APREMILAST [Suspect]
     Active Substance: APREMILAST
     Indication: Rheumatoid arthritis
     Route: 065
  243. APREMILAST [Suspect]
     Active Substance: APREMILAST
     Dosage: 6 MILLIGRAM, DAILY (1 EVERY 1 DAYS)
     Route: 065
  244. APREMILAST [Suspect]
     Active Substance: APREMILAST
     Dosage: 3 MILLIGRAM, 2 EVERY 1 DAYS
     Route: 065
  245. APREMILAST [Suspect]
     Active Substance: APREMILAST
     Route: 065
  246. CETIRIZINE HYDROCHLORIDE [Suspect]
     Active Substance: CETIRIZINE HYDROCHLORIDE
     Indication: Rheumatoid arthritis
     Route: 048
  247. CETIRIZINE HYDROCHLORIDE [Suspect]
     Active Substance: CETIRIZINE HYDROCHLORIDE
     Indication: Product used for unknown indication
     Route: 065
  248. CORTISONE ACETATE [Suspect]
     Active Substance: CORTISONE ACETATE
     Indication: Product used for unknown indication
     Route: 061
  249. CORTISONE ACETATE [Suspect]
     Active Substance: CORTISONE ACETATE
     Indication: Rheumatoid arthritis
     Route: 065
  250. CORTISONE ACETATE [Suspect]
     Active Substance: CORTISONE ACETATE
     Route: 048
  251. CORTISONE ACETATE [Suspect]
     Active Substance: CORTISONE ACETATE
     Route: 065
  252. CORTISONE ACETATE [Suspect]
     Active Substance: CORTISONE ACETATE
     Route: 058
  253. CORTISONE ACETATE [Suspect]
     Active Substance: CORTISONE ACETATE
     Route: 065
  254. CORTISONE ACETATE [Suspect]
     Active Substance: CORTISONE ACETATE
     Route: 065
  255. COSENTYX [Suspect]
     Active Substance: SECUKINUMAB
     Indication: Psoriatic arthropathy
     Route: 065
  256. COSENTYX [Suspect]
     Active Substance: SECUKINUMAB
     Indication: Rheumatoid arthritis
     Route: 005
  257. DESOXIMETASONE [Suspect]
     Active Substance: DESOXIMETASONE
     Indication: Rheumatoid arthritis
     Route: 048
  258. DESOXIMETASONE [Suspect]
     Active Substance: DESOXIMETASONE
     Route: 003
  259. DESOXIMETASONE [Suspect]
     Active Substance: DESOXIMETASONE
     Route: 058
  260. DESOXIMETASONE [Suspect]
     Active Substance: DESOXIMETASONE
     Route: 065
  261. DESOXIMETASONE [Suspect]
     Active Substance: DESOXIMETASONE
     Route: 048
  262. DESOXIMETASONE [Suspect]
     Active Substance: DESOXIMETASONE
     Route: 065
  263. DICLOFENAC SODIUM [Suspect]
     Active Substance: DICLOFENAC SODIUM
     Indication: Product used for unknown indication
     Route: 065
  264. DICLOFENAC SODIUM [Suspect]
     Active Substance: DICLOFENAC SODIUM
     Route: 065
  265. DICLOFENAC SODIUM [Suspect]
     Active Substance: DICLOFENAC SODIUM
     Route: 058
  266. DESOXIMETASONE [Suspect]
     Active Substance: DESOXIMETASONE
     Indication: Product used for unknown indication
     Route: 058
  267. DESOXIMETASONE [Suspect]
     Active Substance: DESOXIMETASONE
     Indication: Rheumatoid arthritis
     Route: 058
  268. DESOXIMETASONE [Suspect]
     Active Substance: DESOXIMETASONE
     Route: 048
  269. THIAMINE HYDROCHLORIDE [Suspect]
     Active Substance: THIAMINE HYDROCHLORIDE
     Indication: Product used for unknown indication
     Route: 065
  270. DEXTROMETHORPHAN [Suspect]
     Active Substance: DEXTROMETHORPHAN
     Indication: Product used for unknown indication
     Route: 065
  271. MAGNESIUM CITRATE [Suspect]
     Active Substance: MAGNESIUM CITRATE
     Indication: Product used for unknown indication
     Route: 065
  272. CHLORHEXIDINE GLUCONATE\ISOPROPYL ALCOHOL [Suspect]
     Active Substance: CHLORHEXIDINE GLUCONATE\ISOPROPYL ALCOHOL
     Indication: Product used for unknown indication
     Route: 061
  273. CHLORHEXIDINE GLUCONATE\ISOPROPYL ALCOHOL [Suspect]
     Active Substance: CHLORHEXIDINE GLUCONATE\ISOPROPYL ALCOHOL
     Route: 002
  274. RETINOL [Suspect]
     Active Substance: RETINOL
     Indication: Product used for unknown indication
     Route: 065
  275. NICOTINAMIDE [Suspect]
     Active Substance: NIACINAMIDE
     Indication: Product used for unknown indication
     Route: 065
  276. RIBOFLAVIN [Suspect]
     Active Substance: RIBOFLAVIN
     Indication: Product used for unknown indication
     Route: 065
  277. CHLORHEXIDINE GLUCONATE [Suspect]
     Active Substance: CHLORHEXIDINE GLUCONATE
     Indication: Product used for unknown indication
     Route: 065
  278. CHLORHEXIDINE GLUCONATE [Suspect]
     Active Substance: CHLORHEXIDINE GLUCONATE
     Route: 061
  279. DEXTROMETHORPHAN HYDROBROMIDE\PSEUDOEPHEDRINE HYDROCHLORIDE\TRIPROLIDI [Suspect]
     Active Substance: DEXTROMETHORPHAN HYDROBROMIDE\PSEUDOEPHEDRINE HYDROCHLORIDE\TRIPROLIDINE HYDROCHLORIDE
     Indication: Product used for unknown indication
     Route: 065
  280. DESOGESTREL\ETHINYL ESTRADIOL [Concomitant]
     Active Substance: DESOGESTREL\ETHINYL ESTRADIOL
     Indication: Product used for unknown indication
     Route: 065
  281. HYDROXYCHLOROQUINE [Concomitant]
     Active Substance: HYDROXYCHLOROQUINE
     Indication: Product used for unknown indication
     Route: 065
  282. HYDROXYCHLOROQUINE [Concomitant]
     Active Substance: HYDROXYCHLOROQUINE
     Route: 048
  283. HYDROXYCHLOROQUINE [Concomitant]
     Active Substance: HYDROXYCHLOROQUINE
     Route: 048
  284. HYDROXYCHLOROQUINE [Concomitant]
     Active Substance: HYDROXYCHLOROQUINE
     Route: 058
  285. HYDROXYCHLOROQUINE [Concomitant]
     Active Substance: HYDROXYCHLOROQUINE
     Route: 065
  286. HYDROXYCHLOROQUINE [Concomitant]
     Active Substance: HYDROXYCHLOROQUINE
     Route: 065
  287. HYDROXYCHLOROQUINE [Concomitant]
     Active Substance: HYDROXYCHLOROQUINE
     Route: 065
  288. NAPROXEN SODIUM [Concomitant]
     Active Substance: NAPROXEN SODIUM
     Indication: Product used for unknown indication
     Dosage: 500 MILLIGRAM, DAILY
     Route: 065
  289. HYDROXYCHLOROQUINE SULFATE [Concomitant]
     Active Substance: HYDROXYCHLOROQUINE SULFATE
     Indication: Product used for unknown indication
     Route: 065
  290. DESOGESTREL [Concomitant]
     Active Substance: DESOGESTREL
     Indication: Product used for unknown indication
     Route: 065

REACTIONS (144)
  - Impaired healing [Fatal]
  - Irritable bowel syndrome [Fatal]
  - Joint range of motion decreased [Fatal]
  - Lip dry [Fatal]
  - Liver injury [Fatal]
  - Lower respiratory tract infection [Fatal]
  - Lung disorder [Fatal]
  - Memory impairment [Fatal]
  - Migraine [Fatal]
  - Muscle injury [Fatal]
  - Muscle spasms [Fatal]
  - Musculoskeletal pain [Fatal]
  - Nasopharyngitis [Fatal]
  - Night sweats [Fatal]
  - Obesity [Fatal]
  - Off label use [Fatal]
  - Abdominal pain upper [Fatal]
  - Asthenia [Fatal]
  - Blepharospasm [Fatal]
  - Blister [Fatal]
  - Breast cancer stage III [Fatal]
  - Depression [Fatal]
  - Diarrhoea [Fatal]
  - Dizziness [Fatal]
  - Dry mouth [Fatal]
  - Duodenal ulcer perforation [Fatal]
  - Epilepsy [Fatal]
  - Facet joint syndrome [Fatal]
  - Fibromyalgia [Fatal]
  - Helicobacter infection [Fatal]
  - Hypercholesterolaemia [Fatal]
  - Vomiting [Fatal]
  - C-reactive protein abnormal [Fatal]
  - C-reactive protein increased [Fatal]
  - Confusional state [Fatal]
  - Contraindicated product administered [Fatal]
  - Drug hypersensitivity [Fatal]
  - Drug ineffective [Fatal]
  - Exposure during pregnancy [Fatal]
  - Infusion related reaction [Fatal]
  - Injection site reaction [Fatal]
  - Nausea [Fatal]
  - Onychomadesis [Fatal]
  - Onychomycosis [Fatal]
  - Pain [Fatal]
  - Pemphigus [Fatal]
  - Pericarditis [Fatal]
  - Product use in unapproved indication [Fatal]
  - Product use issue [Fatal]
  - Psoriatic arthropathy [Fatal]
  - Rash [Fatal]
  - Rheumatic fever [Fatal]
  - Rheumatoid arthritis [Fatal]
  - Sleep disorder [Fatal]
  - Swelling [Fatal]
  - Synovitis [Fatal]
  - Systemic lupus erythematosus [Fatal]
  - Therapeutic product effect decreased [Fatal]
  - Therapeutic product effect incomplete [Fatal]
  - Treatment failure [Fatal]
  - Type 2 diabetes mellitus [Fatal]
  - Wound [Fatal]
  - Dyspnoea [Fatal]
  - Ill-defined disorder [Fatal]
  - Abdominal discomfort [Fatal]
  - Abdominal distension [Fatal]
  - Adverse reaction [Fatal]
  - Alopecia [Fatal]
  - Anti-cyclic citrullinated peptide antibody positive [Fatal]
  - Arthralgia [Fatal]
  - Arthropathy [Fatal]
  - Blood cholesterol increased [Fatal]
  - Coeliac disease [Fatal]
  - Condition aggravated [Fatal]
  - Drug intolerance [Fatal]
  - Drug-induced liver injury [Fatal]
  - Dyspepsia [Fatal]
  - Fatigue [Fatal]
  - General physical health deterioration [Fatal]
  - Glossodynia [Fatal]
  - Hand deformity [Fatal]
  - Grip strength decreased [Fatal]
  - Headache [Fatal]
  - Hepatic enzyme increased [Fatal]
  - Hypersensitivity [Fatal]
  - Hypertension [Fatal]
  - Insomnia [Fatal]
  - Joint swelling [Fatal]
  - Live birth [Fatal]
  - Malaise [Fatal]
  - Maternal exposure during pregnancy [Fatal]
  - Musculoskeletal stiffness [Fatal]
  - Nail disorder [Fatal]
  - Product label confusion [Fatal]
  - Back injury [Fatal]
  - Fall [Fatal]
  - Finger deformity [Fatal]
  - Gait inability [Fatal]
  - Hepatitis [Fatal]
  - Inflammation [Fatal]
  - Injury [Fatal]
  - Loss of personal independence in daily activities [Fatal]
  - Mobility decreased [Fatal]
  - Muscular weakness [Fatal]
  - Neck pain [Fatal]
  - Pain in extremity [Fatal]
  - Gastrointestinal disorder [Fatal]
  - Bursitis [Fatal]
  - Folliculitis [Fatal]
  - Gastrooesophageal reflux disease [Fatal]
  - Hypoaesthesia [Fatal]
  - Intentional product use issue [Fatal]
  - Osteoarthritis [Fatal]
  - Paraesthesia [Fatal]
  - Peripheral swelling [Fatal]
  - Product quality issue [Fatal]
  - Stomatitis [Fatal]
  - Taste disorder [Fatal]
  - Urticaria [Fatal]
  - Weight increased [Fatal]
  - Wheezing [Fatal]
  - Wound infection [Fatal]
  - Pneumonia [Fatal]
  - Liver function test increased [Fatal]
  - Peripheral venous disease [Fatal]
  - Contusion [Fatal]
  - Overdose [Fatal]
  - Pruritus [Fatal]
  - Red blood cell sedimentation rate abnormal [Fatal]
  - Rheumatoid factor positive [Fatal]
  - Normal newborn [Fatal]
  - No adverse event [Unknown]
  - Decreased appetite [Fatal]
  - Underdose [Fatal]
  - Incorrect product administration duration [Fatal]
  - Bronchitis [Fatal]
  - Eye injury [Fatal]
  - Psoriasis [Fatal]
  - Skin reaction [Fatal]
  - Tachycardia [Fatal]
  - Ulcer haemorrhage [Fatal]
  - Upper respiratory tract infection [Fatal]
  - White blood cell count decreased [Fatal]
  - Discomfort [Fatal]
